FAERS Safety Report 5142549-2 (Version None)
Quarter: 2006Q4

REPORT INFORMATION
  Report Type: 
  Country: None (occurrence: None)
  Receive Date: 20061027
  Receipt Date: 20061017
  Transmission Date: 20070319
  Serious: Yes (Disabling, Other)
  Sender: FDA-Public Use
  Company Number: 2006121623

PATIENT
  Age: 59 Year
  Sex: Female
  Weight: 108.8633 kg

DRUGS (6)
  1. LIPITOR [Suspect]
     Indication: BLOOD CHOLESTEROL INCREASED
     Dosage: 40 MG (40 MG, 2 IN 1 D), ORAL
     Route: 048
     Dates: start: 20060914, end: 20060921
  2. ANTI-DIABETICS (ANTI-DIABETICS) [Concomitant]
  3. ACCUPRIL [Concomitant]
  4. INDAPAMINE (INAPAMIDE) [Concomitant]
  5. INSULIN (INSULIN) [Concomitant]
  6. SYNTHROID [Concomitant]

REACTIONS (12)
  - ACTIVITIES OF DAILY LIVING IMPAIRED [None]
  - ASTHENIA [None]
  - GAIT DISTURBANCE [None]
  - HYPOKINESIA [None]
  - JOINT RANGE OF MOTION DECREASED [None]
  - JOINT SWELLING [None]
  - MUSCLE SPASMS [None]
  - MUSCULAR WEAKNESS [None]
  - MYALGIA [None]
  - NECK PAIN [None]
  - OEDEMA PERIPHERAL [None]
  - PAIN IN EXTREMITY [None]
